FAERS Safety Report 11955081 (Version 1)
Quarter: 2016Q1

REPORT INFORMATION
  Report Type: Report from Study
  Country: US (occurrence: US)
  Receive Date: 20160125
  Receipt Date: 20160125
  Transmission Date: 20160526
  Serious: No
  Sender: FDA-Public Use
  Company Number: US-ABBVIE-15K-163-1348883-00

PATIENT
  Age: 53 Year
  Sex: Male

DRUGS (2)
  1. HUMIRA [Suspect]
     Active Substance: ADALIMUMAB
     Indication: PSORIATIC ARTHROPATHY
     Route: 065
     Dates: start: 201402
  2. HUMIRA [Suspect]
     Active Substance: ADALIMUMAB
     Route: 065
     Dates: end: 201501

REACTIONS (8)
  - Pain [Not Recovered/Not Resolved]
  - Axillary mass [Recovered/Resolved]
  - Emotional disorder [Not Recovered/Not Resolved]
  - Folliculitis [Unknown]
  - Pain [Not Recovered/Not Resolved]
  - Sweat gland disorder [Not Recovered/Not Resolved]
  - Axillary mass [Not Recovered/Not Resolved]
  - Sinusitis [Not Recovered/Not Resolved]

NARRATIVE: CASE EVENT DATE: 2014
